FAERS Safety Report 10285940 (Version 1)
Quarter: 2014Q3

REPORT INFORMATION
  Report Type: Spontaneous
  Country: US (occurrence: None)
  Receive Date: 20140703
  Receipt Date: 20140703
  Transmission Date: 20150326
  Serious: No
  Sender: FDA-Public Use
  Company Number: None

PATIENT
  Age: 28 Year
  Sex: Female
  Weight: 54.43 kg

DRUGS (1)
  1. EPIDUO [Suspect]
     Active Substance: ADAPALENE\BENZOYL PEROXIDE
     Indication: ACNE
     Dosage: THIN FILM AT BEDTIME APPLIED TO A SURFACE, USUALLY THE SKIN
     Route: 061
     Dates: start: 20140626, end: 20140627

REACTIONS (10)
  - Hyperaesthesia [None]
  - Swelling face [None]
  - Dry skin [None]
  - Pain of skin [None]
  - Skin burning sensation [None]
  - Rash [None]
  - Pruritus [None]
  - Eye swelling [None]
  - Skin disorder [None]
  - Erythema [None]

NARRATIVE: CASE EVENT DATE: 20140626
